FAERS Safety Report 12922976 (Version 1)
Quarter: 2016Q4

REPORT INFORMATION
  Report Type: Spontaneous
  Country: US (occurrence: US)
  Receive Date: 20161108
  Receipt Date: 20161108
  Transmission Date: 20170207
  Serious: Yes (Other)
  Sender: FDA-Public Use
  Company Number: US-PFIZER INC-2016517215

PATIENT
  Age: 67 Year
  Sex: Female

DRUGS (1)
  1. XELJANZ XR [Suspect]
     Active Substance: TOFACITINIB CITRATE
     Dosage: 11 MG, UNK

REACTIONS (7)
  - Fatigue [Unknown]
  - Nausea [Unknown]
  - Headache [Unknown]
  - Sinusitis [Unknown]
  - Diarrhoea [Unknown]
  - Abdominal pain upper [Unknown]
  - Respiratory tract infection [Unknown]
